FAERS Safety Report 6642894-5 (Version None)
Quarter: 2010Q1

REPORT INFORMATION
  Report Type: 
  Country: None (occurrence: None)
  Receive Date: 20100319
  Receipt Date: 20100308
  Transmission Date: 20100710
  Serious: Yes (Other)
  Sender: FDA-Public Use
  Company Number: US-ELI_LILLY_AND_COMPANY-US201001003605

PATIENT
  Sex: Female

DRUGS (19)
  1. FORTEO [Suspect]
     Indication: OSTEOPOROSIS
     Dosage: 20 UG, DAILY (1/D)
     Dates: start: 20091201
  2. EXFORGE /01634301/ [Concomitant]
  3. CLONIDINE [Concomitant]
  4. METOPROLOL TARTRATE [Concomitant]
  5. FUROSEMIDE [Concomitant]
  6. CATAPRES                                /UNK/ [Concomitant]
  7. NITROGLYCERIN [Concomitant]
     Route: 062
  8. PLAVIX [Concomitant]
  9. ECOTRIN [Concomitant]
  10. NITROGLYCERIN [Concomitant]
  11. NITROGLYCERIN [Concomitant]
     Route: 002
  12. SYNTHROID [Concomitant]
  13. HYDROCODONE [Concomitant]
  14. CYCLOBENZAPRINE [Concomitant]
  15. PREDNISONE [Concomitant]
     Dosage: 5 MG, UNK
  16. MIRALAX [Concomitant]
  17. DULCOLAX [Concomitant]
  18. ZOLPIDEM [Concomitant]
  19. OMEPRAZOLE [Concomitant]

REACTIONS (17)
  - ARTHROPATHY [None]
  - BLINDNESS UNILATERAL [None]
  - BLOOD PRESSURE INCREASED [None]
  - CERUMEN IMPACTION [None]
  - DYSPNOEA [None]
  - EAR PAIN [None]
  - FALL [None]
  - FEELING ABNORMAL [None]
  - FOOT FRACTURE [None]
  - HAND FRACTURE [None]
  - HEAD INJURY [None]
  - INJECTION SITE HAEMORRHAGE [None]
  - LOSS OF CONSCIOUSNESS [None]
  - LYMPHADENOPATHY [None]
  - MALAISE [None]
  - RETINAL TEAR [None]
  - SWELLING [None]
